FAERS Safety Report 11691188 (Version 1)
Quarter: 2015Q4

REPORT INFORMATION
  Report Type: Spontaneous
  Country: US (occurrence: US)
  Receive Date: 20151102
  Receipt Date: 20151102
  Transmission Date: 20160304
  Serious: No
  Sender: FDA-Public Use
  Company Number: US-PERRIGO-15US010011

PATIENT
  Age: 56 Year
  Sex: Female
  Weight: 48.98 kg

DRUGS (1)
  1. NICOTINE MINI [Suspect]
     Active Substance: NICOTINE
     Indication: SMOKING CESSATION THERAPY
     Dosage: UNKNOWN, UNKNOWN
     Route: 002
     Dates: start: 201509

REACTIONS (1)
  - Hiccups [Unknown]

NARRATIVE: CASE EVENT DATE: 201509
